FAERS Safety Report 24047719 (Version 1)
Quarter: 2024Q3

REPORT INFORMATION
  Report Type: Report from Study
  Country: CA (occurrence: CA)
  Receive Date: 20240703
  Receipt Date: 20240703
  Transmission Date: 20241016
  Serious: Yes (Hospitalization)
  Sender: ABBVIE
  Company Number: CA-ABBVIE-5821034

PATIENT
  Age: 72 Year
  Sex: Female

DRUGS (6)
  1. RINVOQ [Suspect]
     Active Substance: UPADACITINIB
     Indication: Rheumatoid arthritis
     Route: 048
     Dates: start: 20201111
  2. RINVOQ [Suspect]
     Active Substance: UPADACITINIB
     Indication: Rheumatoid arthritis
     Route: 048
  3. Statex [Concomitant]
     Indication: Pain
     Dates: start: 20231209
  4. Statex [Concomitant]
     Indication: Pain
     Route: 048
     Dates: start: 20240626
  5. HYDROMORPHONE [Concomitant]
     Active Substance: HYDROMORPHONE
     Indication: Product used for unknown indication
     Dates: start: 20240626
  6. LASIX [Concomitant]
     Active Substance: FUROSEMIDE
     Indication: Product used for unknown indication
     Route: 048

REACTIONS (15)
  - Arthralgia [Not Recovered/Not Resolved]
  - Vitreous floaters [Unknown]
  - Fatigue [Unknown]
  - Pain [Unknown]
  - Oedema peripheral [Recovering/Resolving]
  - Groin pain [Unknown]
  - Muscular weakness [Unknown]
  - Musculoskeletal disorder [Unknown]
  - Fall [Unknown]
  - Asthenia [Unknown]
  - Burning mouth syndrome [Unknown]
  - Presyncope [Unknown]
  - Pain [Unknown]
  - Vomiting [Unknown]
  - Visual impairment [Unknown]

NARRATIVE: CASE EVENT DATE: 20240608
